FAERS Safety Report 5889853-8 (Version None)
Quarter: 2008Q3

REPORT INFORMATION
  Report Type: 
  Country: None (occurrence: None)
  Receive Date: 20080919
  Receipt Date: 20080911
  Transmission Date: 20090109
  Serious: Yes (Other)
  Sender: FDA-Public Use
  Company Number: US-GENENTECH-267962

PATIENT

DRUGS (2)
  1. BEVACIZUMAB [Suspect]
     Indication: GLIOMA
     Dosage: 10 MG/KG, Q2W
     Route: 042
  2. RADIATION THERAPY [Suspect]
     Indication: MALIGNANT GLIOMA
     Dosage: 30 GY, UNK

REACTIONS (1)
  - OPTIC NEUROPATHY [None]
